FAERS Safety Report 15367864 (Version 1)
Quarter: 2018Q3

REPORT INFORMATION
  Report Type: Spontaneous
  Country: US (occurrence: US)
  Receive Date: 20180904
  Receipt Date: 20180904
  Transmission Date: 20181010
  Serious: Yes (Death)
  Sender: FDA-Public Use
  Company Number: None

PATIENT
  Age: 54 Year
  Sex: Male

DRUGS (8)
  1. CLOPIDOGREL [Concomitant]
     Active Substance: CLOPIDOGREL BISULFATE
  2. DIGOX [Concomitant]
     Active Substance: DIGOXIN
  3. METHOTREXATE. [Concomitant]
     Active Substance: METHOTREXATE
  4. METOPROLOL. [Concomitant]
     Active Substance: METOPROLOL
  5. PANTROPRAZOLE [Concomitant]
  6. FOLIC ACID. [Concomitant]
     Active Substance: FOLIC ACID
  7. XARELTO [Concomitant]
     Active Substance: RIVAROXABAN
  8. ENBREL [Suspect]
     Active Substance: ETANERCEPT
     Indication: RHEUMATOID ARTHRITIS
     Route: 058
     Dates: start: 20180128, end: 20180617

REACTIONS (1)
  - Death [None]

NARRATIVE: CASE EVENT DATE: 20180823
